FAERS Safety Report 9705485 (Version 1)
Quarter: 2013Q4

REPORT INFORMATION
  Report Type: Spontaneous
  Country: US (occurrence: US)
  Receive Date: 20131122
  Receipt Date: 20131122
  Transmission Date: 20140711
  Serious: Yes (Other)
  Sender: FDA-Public Use
  Company Number: US-ABBVIE-13P-163-1170000-00

PATIENT
  Age: 66 Year
  Sex: Male
  Weight: 88.53 kg

DRUGS (3)
  1. VICODIN 5/500 [Suspect]
     Indication: PAIN
     Dosage: 5/500 MG
     Dates: end: 2013
  2. ZANAFLEX [Suspect]
     Indication: MUSCLE RELAXANT THERAPY
     Dates: end: 2013
  3. LYRICA [Suspect]
     Indication: DIABETIC NEUROPATHY

REACTIONS (2)
  - Surgery [Unknown]
  - Adverse drug reaction [Unknown]
